FAERS Safety Report 4885400-8 (Version None)
Quarter: 2005Q4

REPORT INFORMATION
  Report Type: 
  Country: None (occurrence: None)
  Receive Date: 20051222
  Receipt Date: 20050222
  Transmission Date: 20060501
  Serious: Yes (Other)
  Sender: FDA-Public Use
  Company Number: 002#1#2005-00043

PATIENT
  Age: 30 Year
  Sex: Male
  Weight: 111.1313 kg

DRUGS (1)
  1. COLYTE [Suspect]
     Indication: COLONOSCOPY
     Dosage: 8OU, 2 IN 1 D, ORAL
     Route: 048
     Dates: start: 20050201, end: 20050201

REACTIONS (1)
  - ANAPHYLACTIC REACTION [None]
